FAERS Safety Report 16961845 (Version 1)
Quarter: 2019Q4

REPORT INFORMATION
  Report Type: Spontaneous
  Country: JP (occurrence: JP)
  Receive Date: 20191025
  Receipt Date: 20191025
  Transmission Date: 20200122
  Serious: Yes (Other)
  Sender: FDA-Public Use
  Company Number: JP-MYLANLABS-2019M1093181

PATIENT
  Age: 52 Year
  Sex: Female

DRUGS (3)
  1. CARBOPLATIN INJ. 50MG ^NK^ [Suspect]
     Active Substance: CARBOPLATIN
     Indication: UTERINE CANCER
     Dosage: UNK
     Route: 042
     Dates: end: 2019
  2. EPIRUBICIN HYDROCHLORIDE INJ. 50MG ^NK^ [Suspect]
     Active Substance: EPIRUBICIN HYDROCHLORIDE
     Indication: UTERINE CANCER
     Dosage: UNK
     Route: 042
     Dates: end: 2019
  3. PACLITAXEL. [Suspect]
     Active Substance: PACLITAXEL
     Indication: UTERINE CANCER
     Dosage: UNK
     Route: 065
     Dates: end: 2019

REACTIONS (3)
  - Infusion site extravasation [Unknown]
  - Infusion site discolouration [Unknown]
  - Vascular pain [Recovering/Resolving]

NARRATIVE: CASE EVENT DATE: 201909
